FAERS Safety Report 25673759 (Version 1)
Quarter: 2025Q3

REPORT INFORMATION
  Report Type: Spontaneous
  Country: EU (occurrence: EU)
  Receive Date: 20250813
  Receipt Date: 20250813
  Transmission Date: 20251020
  Serious: Yes (Other)
  Sender: CELLTRION
  Company Number: EU-BRISTOL-MYERS SQUIBB COMPANY-2025-082348

PATIENT

DRUGS (5)
  1. RITUXIMAB [Suspect]
     Active Substance: RITUXIMAB
     Indication: Follicular lymphoma
     Dates: start: 202303
  2. RITUXIMAB [Suspect]
     Active Substance: RITUXIMAB
     Dates: start: 202408
  3. RITUXIMAB [Suspect]
     Active Substance: RITUXIMAB
     Dates: start: 202408
  4. RITUXIMAB [Suspect]
     Active Substance: RITUXIMAB
     Dates: start: 202504
  5. LENALIDOMIDE [Suspect]
     Active Substance: LENALIDOMIDE
     Indication: Follicular lymphoma
     Dates: start: 202504

REACTIONS (1)
  - Malignant neoplasm progression [Unknown]
